FAERS Safety Report 4918026-8 (Version None)
Quarter: 2006Q1

REPORT INFORMATION
  Report Type: 
  Country: None (occurrence: None)
  Receive Date: 20060221
  Receipt Date: 20051018
  Transmission Date: 20060701
  Serious: Yes (Hospitalization)
  Sender: FDA-Public Use
  Company Number: GB-MERCK-0510GBR00140

PATIENT
  Age: 57 Year
  Sex: Male

DRUGS (5)
  1. ATENOLOL [Concomitant]
     Route: 048
     Dates: start: 20030806, end: 20040201
  2. ATENOLOL [Concomitant]
     Route: 048
     Dates: start: 20040223
  3. VIOXX [Suspect]
     Route: 048
     Dates: start: 20030806, end: 20031001
  4. VIOXX [Suspect]
     Route: 048
     Dates: start: 19990101, end: 20010201
  5. VIOXX [Suspect]
     Route: 048
     Dates: start: 20010501, end: 20030802

REACTIONS (21)
  - ABDOMINAL PAIN [None]
  - ACUTE MYOCARDIAL INFARCTION [None]
  - BLOOD CREATININE INCREASED [None]
  - BLOOD PRESSURE INCREASED [None]
  - BLOOD UREA INCREASED [None]
  - CARDIAC MURMUR [None]
  - CHEST PAIN [None]
  - CONJUNCTIVITIS VIRAL [None]
  - DIZZINESS [None]
  - DYSPNOEA [None]
  - HEAT RASH [None]
  - HYPERHIDROSIS [None]
  - HYPERLIPIDAEMIA [None]
  - LIMB DISCOMFORT [None]
  - MALAISE [None]
  - OEDEMA PERIPHERAL [None]
  - PAIN IN EXTREMITY [None]
  - PARAESTHESIA [None]
  - PHARYNGOLARYNGEAL PAIN [None]
  - PYREXIA [None]
  - VENTRICULAR DYSFUNCTION [None]
